FAERS Safety Report 5311801-X (Version None)
Quarter: 2007Q2

REPORT INFORMATION
  Report Type: 
  Country: None (occurrence: None)
  Receive Date: 20070430
  Receipt Date: 20070116
  Transmission Date: 20071010
  Serious: No
  Sender: FDA-Public Use
  Company Number: 2003UW01604

PATIENT
  Age: 70 Year
  Sex: Female
  Weight: 50 kg

DRUGS (9)
  1. NEXIUM [Suspect]
     Indication: ABDOMINAL PAIN UPPER
     Route: 048
     Dates: start: 20030101
  2. FOSAMAX [Concomitant]
  3. LOTENSIN [Concomitant]
  4. VYTORIN [Concomitant]
  5. PAXIL [Concomitant]
  6. CELEBREX [Concomitant]
  7. GLUCOSAMINE W/CHONDROITIN [Concomitant]
  8. CALCIUM CHLORIDE [Concomitant]
  9. VITAMINS [Concomitant]

REACTIONS (2)
  - FLATULENCE [None]
  - OSTEOPENIA [None]
